FAERS Safety Report 9884382 (Version 1)
Quarter: 2013Q2

REPORT INFORMATION
  Report Type: Spontaneous
  Country: FR (occurrence: None)
  Receive Date: 20121220
  Receipt Date: 20121220
  Transmission Date: 20140414
  Serious: Yes (Hospitalization, Other)
  Sender: FDA-Public Use
  Company Number: 216900LEO

PATIENT
  Age: 60 Year
  Sex: Female

DRUGS (12)
  1. INNOHEP (TINZAPARIN SODIUM) [Suspect]
     Indication: PRODUCT USED FOR UNKNOWN INDICATION
  2. GLYCOPEPTIDES (GLYCOPEPTIDE ANTIBACTERIALS) [Suspect]
     Indication: PRODUCT USED FOR UNKNOWN INDICATION
  3. BETA-LACTAMS [Suspect]
     Indication: PRODUCT USED FOR UNKNOWN INDICATION
  4. HISTAMINE [Suspect]
     Indication: PRODUCT USED FOR UNKNOWN INDICATION
  5. IMIDAZOLE [Suspect]
     Indication: PRODUCT USED FOR UNKNOWN INDICATION
  6. IRON (UNSPECIFIED INGREDIENT) [Suspect]
     Indication: PRODUCT USED FOR UNKNOWN INDICATION
  7. AMIKACIN (AMIKACIN) [Suspect]
     Indication: PRODUCT USED FOR UNKNOWN INDICATION
  8. VANCOMYCIN (VANCOMYCIN) [Suspect]
     Indication: PRODUCT USED FOR UNKNOWN INDICATION
  9. ULTRAVIST [Suspect]
     Indication: PRODUCT USED FOR UNKNOWN INDICATION
  10. TELEBRIX [Suspect]
     Indication: PRODUCT USED FOR UNKNOWN INDICATION
  11. GASTROGRAFIN [Suspect]
     Indication: PRODUCT USED FOR UNKNOWN INDICATION
  12. IOMERON [Suspect]
     Indication: PRODUCT USED FOR UNKNOWN INDICATION

REACTIONS (9)
  - Drug reaction with eosinophilia and systemic symptoms [None]
  - Face oedema [None]
  - Rash maculo-papular [None]
  - Lymphadenopathy [None]
  - Hyperthermia [None]
  - Eosinophilia [None]
  - Monocytosis [None]
  - Lymphocytosis [None]
  - Skin test positive [None]
